FAERS Safety Report 7093554-0 (Version None)
Quarter: 2010Q4

REPORT INFORMATION
  Report Type: 
  Country: None (occurrence: None)
  Receive Date: 20101110
  Receipt Date: 20101106
  Transmission Date: 20110411
  Serious: Yes (Death, Hospitalization)
  Sender: FDA-Public Use
  Company Number: DE-SANOFI-AVENTIS-2010SA067541

PATIENT
  Sex: Male

DRUGS (1)
  1. CABAZITAXEL [Suspect]
     Route: 041

REACTIONS (2)
  - ASCITES [None]
  - DEATH [None]
